FAERS Safety Report 18295983 (Version 2)
Quarter: 2020Q3

REPORT INFORMATION
  Report Type: Spontaneous
  Country: US (occurrence: US)
  Receive Date: 20200922
  Receipt Date: 20200929
  Transmission Date: 20201103
  Serious: Yes (Other)
  Sender: FDA-Public Use
  Company Number: US-GLAXOSMITHKLINE-US2020AMR186179

PATIENT
  Sex: Female

DRUGS (3)
  1. ZEJULA [Suspect]
     Active Substance: NIRAPARIB
     Indication: OVARIAN CANCER
     Dosage: 3 DF (CAPSULES), QD
  2. ZEJULA [Suspect]
     Active Substance: NIRAPARIB
     Dosage: 2 DF, QD (2 CAPSULES PER NIGHT )
  3. ZEJULA [Suspect]
     Active Substance: NIRAPARIB
     Dosage: 1 DF, QD (1 CAPSULES PER NIGHT )

REACTIONS (7)
  - Platelet count decreased [Recovering/Resolving]
  - Contusion [Recovering/Resolving]
  - Madarosis [Recovering/Resolving]
  - Drug intolerance [Unknown]
  - Lung carcinoma cell type unspecified recurrent [Recovered/Resolved]
  - Vein rupture [Recovering/Resolving]
  - Ovarian cancer recurrent [Unknown]
